FAERS Safety Report 5247024-2 (Version None)
Quarter: 2007Q1

REPORT INFORMATION
  Report Type: 
  Country: None (occurrence: None)
  Receive Date: 20070226
  Receipt Date: 20070223
  Transmission Date: 20070707
  Serious: Yes (Hospitalization)
  Sender: FDA-Public Use
  Company Number: JP-JPN-A200700649

PATIENT
  Age: 75 Year
  Sex: Female

DRUGS (10)
  1. VALTREX [Suspect]
     Indication: HERPES ZOSTER
     Dosage: 1G THREE TIMES PER DAY
     Route: 048
     Dates: start: 20070208, end: 20070212
  2. TAKEPRON [Concomitant]
     Route: 065
  3. NU-LOTAN [Concomitant]
     Route: 048
  4. ONEALFA [Concomitant]
     Route: 048
  5. MAALOX FAST BLOCKER [Concomitant]
     Route: 048
  6. MEVALOTIN [Concomitant]
     Route: 048
  7. LUPRAC [Concomitant]
     Route: 048
  8. ALMARL [Concomitant]
     Route: 048
  9. CYANOCOBALAMIN [Concomitant]
     Route: 065
  10. GASMOTIN [Concomitant]
     Route: 048

REACTIONS (3)
  - ABASIA [None]
  - HYPONATRAEMIA [None]
  - RENAL TUBULAR DISORDER [None]
